FAERS Safety Report 7765504-2 (Version None)
Quarter: 2011Q3

REPORT INFORMATION
  Report Type: 
  Country: None (occurrence: None)
  Receive Date: 20110906
  Receipt Date: 20110517
  Transmission Date: 20111222
  Serious: No
  Sender: FDA-Public Use
  Company Number: 201104008

PATIENT
  Age: 56 Year
  Sex: Male

DRUGS (1)
  1. XIAFLEX [Suspect]
     Indication: DUPUYTREN'S CONTRACTURE
     Dosage: 0.58 MG, 1 IN 1 D, INTRALESIONAL
     Route: 026
     Dates: start: 20110331, end: 20110331

REACTIONS (6)
  - OEDEMA PERIPHERAL [None]
  - LACERATION [None]
  - LYMPHADENOPATHY [None]
  - PAIN IN EXTREMITY [None]
  - CONTUSION [None]
  - INJECTION SITE HAEMORRHAGE [None]
